FAERS Safety Report 19176658 (Version 2)
Quarter: 2022Q2

REPORT INFORMATION
  Report Type: Spontaneous
  Country: ES (occurrence: ES)
  Receive Date: 20210424
  Receipt Date: 20220527
  Transmission Date: 20220721
  Serious: Yes (Hospitalization)
  Sender: FDA-Public Use
  Company Number: ES-PFIZER INC-2021423127

PATIENT
  Age: 39 Year
  Sex: Female

DRUGS (1)
  1. ENBREL [Suspect]
     Active Substance: ETANERCEPT
     Indication: Rheumatoid arthritis
     Dosage: UNK
     Route: 065

REACTIONS (2)
  - Lupus-like syndrome [Recovered/Resolved]
  - Renal failure [Recovered/Resolved]
